FAERS Safety Report 8049806-0 (Version None)
Quarter: 2012Q1

REPORT INFORMATION
  Report Type: 
  Country: None (occurrence: None)
  Receive Date: 20120117
  Receipt Date: 20120103
  Transmission Date: 20120608
  Serious: Yes (Death, Hospitalization, Other)
  Sender: FDA-Public Use
  Company Number: IT-CELGENEUS-083-20785-11121988

PATIENT
  Sex: Female

DRUGS (8)
  1. THALIDOMIDE [Suspect]
     Indication: MULTIPLE MYELOMA
     Dosage: 50 MILLIGRAM
     Route: 048
     Dates: end: 20111127
  2. METFORAL [Concomitant]
     Dosage: 2550 MILLIGRAM
     Route: 048
     Dates: start: 20111013, end: 20111127
  3. ALKERAN [Concomitant]
     Dosage: 16 MILLIGRAM
     Route: 048
     Dates: start: 20111014, end: 20111114
  4. PREDNISONE [Concomitant]
     Dosage: 100 MILLIGRAM
     Route: 065
     Dates: start: 20111014, end: 20111017
  5. THALIDOMIDE [Suspect]
     Dosage: 50 MILLIGRAM
     Route: 048
     Dates: start: 20111014, end: 20111031
  6. PREDNISONE TAB [Concomitant]
     Dosage: 100 MILLIGRAM
     Route: 048
     Dates: start: 20111014, end: 20111114
  7. LANSOPRAZOLE [Concomitant]
     Dosage: 30 MILLIGRAM
     Route: 048
     Dates: start: 20111013, end: 20111127
  8. ENOXAPARIN SODIUM [Concomitant]
     Dosage: 4000 IU (INTERNATIONAL UNIT)
     Route: 058
     Dates: start: 20110614, end: 20111127

REACTIONS (4)
  - ANAEMIA [None]
  - PNEUMONIA KLEBSIELLA [None]
  - PYREXIA [None]
  - THROMBOCYTOPENIA [None]
